FAERS Safety Report 7476863-2 (Version None)
Quarter: 2011Q2

REPORT INFORMATION
  Report Type: 
  Country: None (occurrence: None)
  Receive Date: 20110512
  Receipt Date: 20090528
  Transmission Date: 20111010
  Serious: Yes (Death, Hospitalization, Other)
  Sender: FDA-Public Use
  Company Number: US-BAYER-200921724NA

PATIENT
  Age: 77 Year
  Sex: Female
  Weight: 57 kg

DRUGS (15)
  1. NAMENDA [Concomitant]
     Dosage: 10 MG, BID
     Route: 048
  2. DOPAMINE HCL [Concomitant]
     Dosage: UNK
     Route: 042
     Dates: start: 20060310
  3. PROTAMINE SULFATE [Concomitant]
     Dosage: 250MG TOTAL
     Route: 042
     Dates: start: 20060310, end: 20060310
  4. PLATELETS [Concomitant]
  5. COREG [Concomitant]
     Dosage: 6.25MG
     Route: 048
  6. NORVASC [Concomitant]
     Dosage: 5MG
     Route: 048
  7. NITROGLYCERIN [Concomitant]
     Dosage: UNK
     Route: 042
     Dates: start: 20060310
  8. LASIX [Concomitant]
     Dosage: 20MG
     Route: 048
  9. RED BLOOD CELLS, CONCENTRATED [Concomitant]
     Dosage: UNK
     Dates: start: 20060310
  10. INSULIN [INSULIN] [Concomitant]
     Dosage: UNK
     Route: 042
     Dates: start: 20060310
  11. TRASYLOL [Suspect]
     Indication: AORTIC DISSECTION
     Dosage: NO TEST DOSE - LOADING DOSE OF 200ML PUMP PRIME PER ANESTHESIA RECORD
     Route: 042
     Dates: start: 20060310, end: 20060310
  12. PLASMA [Concomitant]
     Dosage: UNK
     Dates: start: 20060310
  13. COUMADIN [Concomitant]
     Dosage: 5 MG, QD
     Route: 048
     Dates: start: 20060303
  14. LIPITOR [Concomitant]
     Dosage: 10MG
     Route: 048
  15. DIGOXIN [Concomitant]
     Dosage: 125MCG
     Route: 048

REACTIONS (6)
  - RENAL FAILURE ACUTE [None]
  - RENAL FAILURE [None]
  - PAIN [None]
  - INJURY [None]
  - RENAL INJURY [None]
  - UNEVALUABLE EVENT [None]
